FAERS Safety Report 5498322-9 (Version None)
Quarter: 2007Q4

REPORT INFORMATION
  Report Type: 
  Country: None (occurrence: None)
  Receive Date: 20071025
  Receipt Date: 20070426
  Transmission Date: 20080405
  Serious: No
  Sender: FDA-Public Use
  Company Number: A0649328A

PATIENT
  Age: 55 Year
  Sex: Female

DRUGS (4)
  1. ADVAIR DISKUS 100/50 [Suspect]
     Indication: ASTHMA
     Route: 055
     Dates: start: 20050501
  2. ALBUTEROL [Concomitant]
  3. ATENOLOL [Concomitant]
  4. CLARITIN [Concomitant]

REACTIONS (1)
  - DRUG DISPENSING ERROR [None]
